FAERS Safety Report 24868539 (Version 3)
Quarter: 2025Q1

REPORT INFORMATION
  Report Type: Spontaneous
  Country: DE (occurrence: DE)
  Receive Date: 20250121
  Receipt Date: 20250219
  Transmission Date: 20250408
  Serious: Yes (Death, Hospitalization, Other)
  Sender: ABBVIE
  Company Number: DE-ABBVIE-6095568

PATIENT
  Age: 73 Year
  Sex: Female
  Weight: 80 kg

DRUGS (8)
  1. RINVOQ [Suspect]
     Active Substance: UPADACITINIB
     Indication: Rheumatoid arthritis
     Route: 048
     Dates: start: 20211125, end: 20241109
  2. BISOPROLOL [Concomitant]
     Active Substance: BISOPROLOL
     Indication: Product used for unknown indication
  3. ASPIRIN [Concomitant]
     Active Substance: ASPIRIN
     Indication: Product used for unknown indication
  4. SIMVASTATIN [Concomitant]
     Active Substance: SIMVASTATIN
     Indication: Product used for unknown indication
  5. ENALAPRIL [Concomitant]
     Active Substance: ENALAPRIL
     Indication: Product used for unknown indication
  6. LERCANIDIPINE [Concomitant]
     Active Substance: LERCANIDIPINE
     Indication: Product used for unknown indication
  7. JARDIANCE [Concomitant]
     Active Substance: EMPAGLIFLOZIN
     Indication: Product used for unknown indication
  8. CHOLECALCIFEROL [Concomitant]
     Active Substance: CHOLECALCIFEROL
     Indication: Product used for unknown indication

REACTIONS (25)
  - Nervous system disorder [Fatal]
  - Acute kidney injury [Fatal]
  - Hypertension [Unknown]
  - Polyneuropathy [Unknown]
  - Gout [Unknown]
  - Hyponatraemia [Unknown]
  - General physical health deterioration [Recovering/Resolving]
  - Confusional state [Recovering/Resolving]
  - Hallucination [Unknown]
  - Hypophagia [Unknown]
  - Metabolic acidosis [Unknown]
  - Hyperkalaemia [Unknown]
  - Loss of consciousness [Unknown]
  - Cardiac arrest [Unknown]
  - Shock symptom [Unknown]
  - Resuscitation [Unknown]
  - Fluid intake reduced [Unknown]
  - Chronic kidney disease [Fatal]
  - Dehydration [Unknown]
  - Discoloured vomit [Unknown]
  - Acute kidney injury [Unknown]
  - Respiratory failure [Fatal]
  - Cardiac failure [Fatal]
  - Hepatic failure [Fatal]
  - General symptom [Unknown]

NARRATIVE: CASE EVENT DATE: 20241101
